FAERS Safety Report 7796830-9 (Version None)
Quarter: 2011Q4

REPORT INFORMATION
  Report Type: 
  Country: None (occurrence: None)
  Receive Date: 20111005
  Receipt Date: 20110927
  Transmission Date: 20120403
  Serious: Yes (Death, Hospitalization, Other)
  Sender: FDA-Public Use
  Company Number: FI-ELI_LILLY_AND_COMPANY-FI201108001292

PATIENT
  Sex: Female

DRUGS (8)
  1. FORTEO [Suspect]
     Indication: OSTEOPOROSIS
     Dosage: 20 UG, QD
  2. FORTEO [Suspect]
     Dosage: 20 UG, QD
     Dates: start: 20110321
  3. INSULIN [Concomitant]
     Indication: DIABETES MELLITUS
     Dosage: UNK
     Dates: end: 20110722
  4. ASPIRIN [Concomitant]
     Indication: ANTICOAGULANT THERAPY
     Dosage: UNK
     Dates: end: 20110722
  5. KALCIPOS-D [Concomitant]
     Indication: MEDICAL DIET
     Dosage: UNK
     Dates: end: 20110722
  6. CORTISONE ACETATE [Concomitant]
     Indication: ASTHMA
     Dosage: 4 MG, QOD
     Dates: end: 20110722
  7. DURAGESIC-100 [Concomitant]
     Indication: PAIN
     Dosage: UNK
     Dates: end: 20110722
  8. VOLTAREN [Concomitant]
     Indication: PAIN
     Dosage: UNK
     Dates: end: 20110722

REACTIONS (5)
  - MALAISE [None]
  - DEATH [None]
  - CONDITION AGGRAVATED [None]
  - GENERAL PHYSICAL HEALTH DETERIORATION [None]
  - CEREBROVASCULAR ACCIDENT [None]
